FAERS Safety Report 20721551 (Version 1)
Quarter: 2022Q2

REPORT INFORMATION
  Report Type: Spontaneous
  Country: GB (occurrence: GB)
  Receive Date: 20220418
  Receipt Date: 20220418
  Transmission Date: 20220721
  Serious: Yes (Other)
  Sender: FDA-Public Use
  Company Number: None

PATIENT
  Age: 38 Year
  Sex: Male

DRUGS (4)
  1. RAMIPRIL [Suspect]
     Active Substance: RAMIPRIL
     Indication: Blood pressure increased
     Dosage: 5 MILLIGRAM, QD (ONE CAPSULE TO BE TAKEN ONCE A DAY TO REDUCE HEART ATTACK)
     Dates: start: 20220318
  2. RAMIPRIL [Suspect]
     Active Substance: RAMIPRIL
     Indication: Myocardial infarction
  3. VENLAFAXINE HYDROCHLORIDE [Concomitant]
     Active Substance: VENLAFAXINE HYDROCHLORIDE
     Dosage: 1 DOSAGE FORM, QD (TAKE ONE CAPSULE IN THE MORNING)
     Dates: start: 20211221
  4. LOSARTAN [Concomitant]
     Active Substance: LOSARTAN
     Indication: Blood pressure increased
     Dosage: 1 DOSAGE FORM, QD (TAKE ONE EVERY MORNING TO REDUCE BLOOD PRESSURE)
     Dates: start: 20220408

REACTIONS (1)
  - Mental impairment [Recovering/Resolving]

NARRATIVE: CASE EVENT DATE: 20220408
